FAERS Safety Report 4496690-8 (Version None)
Quarter: 2004Q4

REPORT INFORMATION
  Report Type: 
  Country: None (occurrence: None)
  Receive Date: 20041108
  Receipt Date: 20041108
  Transmission Date: 20050328
  Serious: Yes (Life-Threatening, Hospitalization)
  Sender: FDA-Public Use
  Company Number: None

PATIENT
  Age: 87 Year
  Sex: Female
  Weight: 47.6277 kg

DRUGS (8)
  1. CYMBALTA [Suspect]
     Indication: DEPRESSION
     Dosage: 60MG PO QD
     Route: 048
     Dates: start: 20041001
  2. CYMBALTA [Suspect]
     Indication: NEUROPATHY PERIPHERAL
     Dosage: 60MG PO QD
     Route: 048
     Dates: start: 20041001
  3. SYNTHROID [Concomitant]
  4. ATIVAN [Concomitant]
  5. ADVAIR [Concomitant]
  6. SPIRIVA [Concomitant]
  7. MIRAPEX [Concomitant]
  8. NOROXIN [Concomitant]

REACTIONS (3)
  - FALL [None]
  - HYPONATRAEMIA [None]
  - PELVIC FRACTURE [None]
